FAERS Safety Report 7558005-8 (Version None)
Quarter: 2011Q2

REPORT INFORMATION
  Report Type: 
  Country: None (occurrence: None)
  Receive Date: 20110613
  Receipt Date: 20110601
  Transmission Date: 20111010
  Serious: Yes (Other)
  Sender: FDA-Public Use
  Company Number: 2011SP024118

PATIENT
  Age: 51 Year
  Sex: Male
  Weight: 70 kg

DRUGS (3)
  1. BOCEPREVIR (SCH-SCH-503034) [Suspect]
     Indication: HEPATITIS C
     Dosage: 800 MG, TID, PO
     Route: 048
     Dates: start: 20110325, end: 20110504
  2. VIRAFERON [Suspect]
     Indication: HEPATITIS C
     Dosage: 1000 MCG, SC
     Dates: start: 20110211, end: 20110503
  3. REBETOL [Suspect]
     Indication: HEPATITIS C
     Dosage: 1000 MG, QD, PO
     Route: 048
     Dates: start: 20110211, end: 20110504

REACTIONS (3)
  - PHARYNGEAL ABSCESS [None]
  - DYSPHAGIA [None]
  - OROPHARYNGEAL PAIN [None]
